FAERS Safety Report 9467725 (Version 1)
Quarter: 2013Q3

REPORT INFORMATION
  Report Type: Spontaneous
  Country: BR (occurrence: BR)
  Receive Date: 20130821
  Receipt Date: 20130821
  Transmission Date: 20140515
  Serious: Yes (Other)
  Sender: FDA-Public Use
  Company Number: BR-JNJFOC-20130806904

PATIENT
  Sex: Female
  Weight: 85 kg

DRUGS (5)
  1. REMICADE [Suspect]
     Indication: ANKYLOSING SPONDYLITIS
     Dosage: INCREASED PROGRESSIVELY, UNTIL 6 AMPOULES IN ONE INFUSION
     Route: 042
     Dates: start: 20110420, end: 20110420
  2. REMICADE [Suspect]
     Indication: ANKYLOSING SPONDYLITIS
     Route: 042
     Dates: start: 2008
  3. TECNOMET [Concomitant]
     Route: 065
  4. ENALAPRIL [Concomitant]
     Indication: BLOOD PRESSURE INCREASED
     Route: 065
  5. RIVOTRIL [Concomitant]
     Route: 065

REACTIONS (8)
  - Liver disorder [Recovered/Resolved]
  - Hysterectomy [Unknown]
  - Obesity surgery [Unknown]
  - Cardiovascular disorder [Unknown]
  - Uveitis [Unknown]
  - Aspartate aminotransferase abnormal [Recovered/Resolved]
  - Alanine aminotransferase abnormal [Recovered/Resolved]
  - Drug ineffective [Unknown]
